FAERS Safety Report 6210982-3 (Version None)
Quarter: 2009Q2

REPORT INFORMATION
  Report Type: 
  Country: None (occurrence: None)
  Receive Date: 20090528
  Receipt Date: 20090528
  Transmission Date: 20091009
  Serious: Yes (Hospitalization, Other)
  Sender: FDA-Public Use
  Company Number: None

PATIENT
  Age: 75 Year
  Sex: Male
  Weight: 63.5036 kg

DRUGS (1)
  1. CASODEX [Suspect]
     Indication: PROSTATE CANCER
     Dosage: 50MG DAY PO
     Route: 048
     Dates: start: 20090201, end: 20090506

REACTIONS (5)
  - DYSPNOEA [None]
  - GASTRIC DISORDER [None]
  - LIVER INJURY [None]
  - LOCALISED INTRAABDOMINAL FLUID COLLECTION [None]
  - OEDEMA PERIPHERAL [None]
